FAERS Safety Report 5657250-6 (Version None)
Quarter: 2008Q1

REPORT INFORMATION
  Report Type: 
  Country: None (occurrence: None)
  Receive Date: 20080310
  Receipt Date: 20080228
  Transmission Date: 20080703
  Serious: Yes (Hospitalization)
  Sender: FDA-Public Use
  Company Number: JP-BRISTOL-MYERS SQUIBB COMPANY-14096622

PATIENT
  Age: 32 Year
  Sex: Male

DRUGS (6)
  1. GATIFLOXACIN [Suspect]
     Indication: TONSILLITIS
     Dosage: PRESCRIBED DOSE-400MG/DAY B.I.D
     Route: 048
     Dates: start: 20080222, end: 20080222
  2. LOBU [Concomitant]
     Route: 048
     Dates: start: 20080222, end: 20080222
  3. APLACE [Concomitant]
     Route: 048
     Dates: start: 20080222, end: 20080222
  4. TRANSAMIN [Concomitant]
     Route: 048
     Dates: start: 20080222, end: 20080222
  5. DALACIN [Concomitant]
     Indication: TONSILLITIS
     Route: 042
     Dates: start: 20080222
  6. BETAMETHASONE SODIUM PHOSPHATE [Concomitant]
     Indication: TONSILLITIS

REACTIONS (2)
  - ANAPHYLACTIC SHOCK [None]
  - ENTEROCOLITIS [None]
